FAERS Safety Report 23828524 (Version 1)
Quarter: 2024Q2

REPORT INFORMATION
  Report Type: Report from Study
  Country: KR (occurrence: KR)
  Receive Date: 20240508
  Receipt Date: 20240508
  Transmission Date: 20240716
  Serious: Yes (Hospitalization)
  Sender: FDA-Public Use
  Company Number: KR-ABBVIE-5747522

PATIENT
  Sex: Male
  Weight: 59 kg

DRUGS (6)
  1. OZURDEX [Suspect]
     Active Substance: DEXAMETHASONE
     Indication: Product used for unknown indication
     Dosage: TIME INTERVAL: AS NECESSARY: LAST ADMINISTRATION-ONGOING
     Route: 031
     Dates: start: 20210407, end: 20210407
  2. LINAGLIPTIN;METFORMIN HYDROCHLORIDE [Concomitant]
     Indication: Product used for unknown indication
     Route: 048
     Dates: start: 20210405
  3. GLIMEPIRIDE [Concomitant]
     Active Substance: GLIMEPIRIDE
     Indication: Product used for unknown indication
     Route: 065
     Dates: start: 20210531
  4. TORSEMIDE [Suspect]
     Active Substance: TORSEMIDE
     Indication: Product used for unknown indication
     Route: 065
     Dates: start: 20210405
  5. LEVOSULPIRIDE [Concomitant]
     Active Substance: LEVOSULPIRIDE
     Indication: Product used for unknown indication
     Route: 065
     Dates: start: 20210531
  6. HYDROCHLOROTHIAZIDE\TELMISARTAN [Concomitant]
     Active Substance: HYDROCHLOROTHIAZIDE\TELMISARTAN
     Indication: Product used for unknown indication
     Route: 048
     Dates: start: 20210405

REACTIONS (1)
  - Appendicitis [Recovered/Resolved]

NARRATIVE: CASE EVENT DATE: 20211014
